FAERS Safety Report 10154048 (Version 1)
Quarter: 2014Q2

REPORT INFORMATION
  Report Type: Spontaneous
  Country: US (occurrence: None)
  Receive Date: 20140502
  Receipt Date: 20140502
  Transmission Date: 20141212
  Serious: Yes (Hospitalization, Other)
  Sender: FDA-Public Use
  Company Number: ADR-2014-00669

PATIENT
  Age: 33 Year
  Sex: Male

DRUGS (5)
  1. BACLOFEN INTRATHECAL [Suspect]
     Indication: MUSCLE SPASTICITY
  2. CLONIDINE [Suspect]
  3. LIDOCAINE [Suspect]
  4. MORPHINE [Suspect]
  5. NARCOTICS [Suspect]

REACTIONS (4)
  - Overdose [None]
  - Pain [None]
  - Bladder disorder [None]
  - Device malfunction [None]
